FAERS Safety Report 5078324-7 (Version None)
Quarter: 2006Q3

REPORT INFORMATION
  Report Type: 
  Country: None (occurrence: None)
  Receive Date: 20060811
  Receipt Date: 20060706
  Transmission Date: 20061208
  Serious: Yes (Hospitalization, Other)
  Sender: FDA-Public Use
  Company Number: 2006UW14127

PATIENT
  Age: 845 Month
  Sex: Female
  Weight: 63 kg

DRUGS (12)
  1. CRESTOR [Suspect]
     Route: 048
     Dates: start: 20050320
  2. CRESTOR [Suspect]
     Route: 048
     Dates: start: 20050701
  3. EZETROL [Suspect]
     Route: 048
     Dates: start: 20060201
  4. NORVASC [Concomitant]
  5. ATENOLOL [Concomitant]
     Dosage: TWO TABLETS IN AM AND 1 TABLET IN PM
     Route: 048
  6. LASIX [Concomitant]
  7. PREDNISONE [Concomitant]
  8. GRAVOL TAB [Concomitant]
  9. 222 [Concomitant]
  10. ASPIRIN [Concomitant]
  11. HYDROCHLOROTHIAZIDE [Concomitant]
  12. DIOVAN [Concomitant]

REACTIONS (23)
  - ABDOMINAL PAIN [None]
  - BLOOD CREATINE PHOSPHOKINASE INCREASED [None]
  - BLOOD CREATININE INCREASED [None]
  - BLOOD PRESSURE INCREASED [None]
  - BLOOD UREA INCREASED [None]
  - CHILLS [None]
  - DYSPNOEA [None]
  - FLANK PAIN [None]
  - GENERAL PHYSICAL HEALTH DETERIORATION [None]
  - HAEMOGLOBIN DECREASED [None]
  - HYPERKALAEMIA [None]
  - HYPERPHOSPHATAEMIA [None]
  - MALAISE [None]
  - MUSCLE SPASMS [None]
  - MYALGIA [None]
  - NAUSEA [None]
  - OEDEMA PERIPHERAL [None]
  - PRURITUS [None]
  - RENAL FAILURE [None]
  - RENAL TUBULAR NECROSIS [None]
  - RHABDOMYOLYSIS [None]
  - URINARY TRACT INFECTION [None]
  - VOMITING [None]
